FAERS Safety Report 4495454-9 (Version None)
Quarter: 2004Q4

REPORT INFORMATION
  Report Type: 
  Country: None (occurrence: None)
  Receive Date: 20041108
  Receipt Date: 20041029
  Transmission Date: 20050328
  Serious: Yes (Hospitalization)
  Sender: FDA-Public Use
  Company Number: 200413363JP

PATIENT
  Sex: 0

DRUGS (1)
  1. LASIX [Suspect]

REACTIONS (4)
  - ELECTROLYTE IMBALANCE [None]
  - METABOLIC ALKALOSIS [None]
  - RENAL FAILURE CHRONIC [None]
  - RESPIRATORY DEPRESSION [None]
